FAERS Safety Report 18855793 (Version 1)
Quarter: 2021Q1

REPORT INFORMATION
  Report Type: Spontaneous
  Country: NL (occurrence: NL)
  Receive Date: 20210205
  Receipt Date: 20210205
  Transmission Date: 20210420
  Serious: Yes (Other)
  Sender: FDA-Public Use
  Company Number: NL-009507513-2102NLD002219

PATIENT
  Sex: Female

DRUGS (4)
  1. DORZOLAMIDE HYDROCHLORIDE. [Suspect]
     Active Substance: DORZOLAMIDE HYDROCHLORIDE
     Indication: GLAUCOMA
     Dosage: 1 DROP TWICE A DAY (1 IN 12 HR)
     Route: 047
  2. TIMOLOL MALEATE. [Suspect]
     Active Substance: TIMOLOL MALEATE
     Dosage: REPORTED AS TIMOPTOL 5MG/ML, 0.2 ML; UNSPECIFIED DOSE AND FREQUENCY
     Route: 047
  3. VITAMIN B COMPLEX [Concomitant]
     Active Substance: CYANOCOBALAMIN\DEXPANTHENOL\NIACINAMIDE\PYRIDOXINE HYDROCHLORIDE\RIBOFLAVIN 5^-PHOSPHATE SODIUM\THIAMINE HYDROCHLORIDE\VITAMIN B COMPLEX
  4. LATANOPROST. [Concomitant]
     Active Substance: LATANOPROST

REACTIONS (6)
  - Skin discolouration [Not Recovered/Not Resolved]
  - Dizziness [Not Recovered/Not Resolved]
  - Loss of consciousness [Not Recovered/Not Resolved]
  - Muscular weakness [Not Recovered/Not Resolved]
  - Hypoaesthesia [Not Recovered/Not Resolved]
  - Palpitations [Not Recovered/Not Resolved]
